FAERS Safety Report 7539669-1 (Version None)
Quarter: 2011Q2

REPORT INFORMATION
  Report Type: 
  Country: None (occurrence: None)
  Receive Date: 20110610
  Receipt Date: 20110531
  Transmission Date: 20111010
  Serious: Yes (Hospitalization)
  Sender: FDA-Public Use
  Company Number: GB-MILLENNIUM PHARMACEUTICALS, INC.-2011-01727

PATIENT

DRUGS (13)
  1. ALFACALCIDOL [Concomitant]
     Indication: HYPERCALCAEMIA THERAPY
     Dosage: 500 MG, QD
     Route: 048
     Dates: start: 20110218
  2. LEVOTHYROXINE SODIUM [Concomitant]
     Indication: THYROID HORMONE REPLACEMENT THERAPY
     Dosage: 75 UG, QD
     Route: 048
  3. DOXORUBICIN HCL [Suspect]
     Indication: MULTIPLE MYELOMA
     Dosage: 9 MG/M2, CYCLIC
     Route: 042
     Dates: start: 20110131, end: 20110407
  4. FLUCONAZOLE [Concomitant]
     Indication: ANTIVIRAL PROPHYLAXIS
     Dosage: 5 MG, BID
     Route: 048
     Dates: start: 20110412, end: 20110525
  5. RANITIDINE [Concomitant]
     Indication: PEPTIC ULCER
     Dosage: 150 MG, QD
     Route: 048
     Dates: start: 20110127
  6. SIMVASTATIN [Concomitant]
     Indication: HYPERCHOLESTEROLAEMIA
     Dosage: 40 MG, QID
     Route: 048
  7. ACYCLOVIR [Concomitant]
     Indication: ANTIVIRAL PROPHYLAXIS
     Dosage: 200 MG, QID
     Route: 048
     Dates: start: 20110310, end: 20110425
  8. VELCADE [Suspect]
     Indication: MULTIPLE MYELOMA
     Dosage: 1 MG/M2, CYCLIC
     Route: 042
     Dates: start: 20110131, end: 20110414
  9. AMLODIPINE [Concomitant]
     Indication: HYPERTENSION
     Dosage: 10 MG, QD
     Route: 048
     Dates: start: 20110206, end: 20110424
  10. CO-AMOXICLAV                       /00756801/ [Concomitant]
     Indication: INFECTION PROPHYLAXIS
     Dosage: 625 MG, TID
     Route: 048
     Dates: start: 20110421
  11. ENOXAPARIN SODIUM [Concomitant]
     Indication: THROMBOSIS PROPHYLAXIS
     Dosage: UNK
     Dates: start: 20110421
  12. DEXAMETHASONE [Suspect]
     Indication: MULTIPLE MYELOMA
     Dosage: 40 MG, QID
     Route: 048
     Dates: start: 20110131, end: 20110407
  13. ATENOLOL [Concomitant]
     Indication: HYPERTENSION
     Dosage: 150 MG, QD
     Route: 048
     Dates: start: 20110128, end: 20110425

REACTIONS (2)
  - LETHARGY [None]
  - DYSPNOEA [None]
